FAERS Safety Report 5127298-9 (Version None)
Quarter: 2006Q4

REPORT INFORMATION
  Report Type: 
  Country: None (occurrence: None)
  Receive Date: 20061013
  Receipt Date: 20061004
  Transmission Date: 20070319
  Serious: Yes (Life-Threatening)
  Sender: FDA-Public Use
  Company Number: FR-ABBOTT-06P-056-0345786-00

PATIENT
  Age: 64 Year
  Sex: Female

DRUGS (5)
  1. DEPAKENE [Suspect]
     Indication: EPILEPSY
     Route: 048
     Dates: start: 20060620, end: 20060804
  2. VFEND [Suspect]
     Indication: SEPSIS
     Route: 048
     Dates: start: 20060715, end: 20060804
  3. METOPROLOL TARTRATE [Concomitant]
     Indication: ESSENTIAL HYPERTENSION
     Route: 048
  4. HYZAAR [Concomitant]
     Indication: ESSENTIAL HYPERTENSION
     Route: 048
  5. ANTIBIOTICS [Concomitant]
     Indication: DRUG USE FOR UNKNOWN INDICATION
     Dates: end: 20060804

REACTIONS (2)
  - CHOLESTASIS [None]
  - SEPSIS [None]
